FAERS Safety Report 5313702-X (Version None)
Quarter: 2007Q2

REPORT INFORMATION
  Report Type: 
  Country: None (occurrence: None)
  Receive Date: 20070430
  Receipt Date: 20070430
  Transmission Date: 20071010
  Serious: No
  Sender: FDA-Public Use
  Company Number: None

PATIENT
  Sex: Male

DRUGS (2)
  1. METFORMIN HYDROCHLORIDE [Suspect]
     Dosage: TABLET  VIAL 40 DRAMS, 60 DRAMS
  2. METFORMIN HYDROCHLORIDE [Suspect]
     Dosage: TABLET

REACTIONS (6)
  - DRUG DISPENSING ERROR [None]
  - HYPOGLYCAEMIA [None]
  - INCORRECT DOSE ADMINISTERED [None]
  - MALAISE [None]
  - MEDICATION ERROR [None]
  - STOMACH DISCOMFORT [None]
